FAERS Safety Report 22036095 (Version 1)
Quarter: 2023Q1

REPORT INFORMATION
  Report Type: Spontaneous
  Country: US (occurrence: US)
  Receive Date: 20230224
  Receipt Date: 20230224
  Transmission Date: 20230418
  Serious: Yes (Other)
  Sender: FDA-Public Use
  Company Number: US-RK PHARMA, INC-20230200007

PATIENT

DRUGS (23)
  1. DOXEPIN HYDROCHLORIDE [Interacting]
     Active Substance: DOXEPIN HYDROCHLORIDE
     Indication: Major depression
     Dosage: 75 MILLIGRAM, HS
  2. DOXEPIN HYDROCHLORIDE [Interacting]
     Active Substance: DOXEPIN HYDROCHLORIDE
     Indication: Generalised anxiety disorder
  3. BUPROPION HYDROCHLORIDE XL [Interacting]
     Active Substance: BUPROPION HYDROCHLORIDE
     Indication: Major depression
     Dosage: 300 MILLIGRAM, QD
  4. BUPROPION HYDROCHLORIDE XL [Interacting]
     Active Substance: BUPROPION HYDROCHLORIDE
     Indication: Generalised anxiety disorder
     Dosage: 150 MILLIGRAM, QD
  5. FLUOXETINE [Interacting]
     Active Substance: FLUOXETINE HYDROCHLORIDE
     Indication: Major depression
     Dosage: 40 MILLIGRAM, QD
  6. FLUOXETINE [Interacting]
     Active Substance: FLUOXETINE HYDROCHLORIDE
     Indication: Generalised anxiety disorder
  7. ACETAMINOPHEN\HYDROCODONE [Interacting]
     Active Substance: ACETAMINOPHEN\HYDROCODONE
     Indication: Pain
     Dosage: 1 DOSAGE FORM, QID
  8. BACLOFEN [Concomitant]
     Active Substance: BACLOFEN
     Indication: Muscle spasms
     Dosage: 10 MILLIGRAM, EVERY 6 HOURS AS NEEDED
  9. DILTIAZEM [Concomitant]
     Active Substance: DILTIAZEM
     Indication: Cardiomyopathy
     Dosage: 120 MILLIGRAM, HS
  10. GLIPIZIDE [Concomitant]
     Active Substance: GLIPIZIDE
     Indication: Diabetes mellitus
     Dosage: 5 MILLIGRAM, QD
  11. GABAPENTIN [Concomitant]
     Active Substance: GABAPENTIN
     Indication: Neuropathy peripheral
     Dosage: 800 MILLIGRAM, QID
  12. ALBUTEROL SULFATE\IPRATROPIUM BROMIDE [Concomitant]
     Active Substance: ALBUTEROL SULFATE\IPRATROPIUM BROMIDE
     Indication: Asthma
     Dosage: 1 DOSAGE FORM, EVERY 6 H AS AS NEEDED
  13. MONTELUKAST [Concomitant]
     Active Substance: MONTELUKAST SODIUM
     Indication: Asthma
     Dosage: 10 MILLIGRAM, HS
  14. ATORVASTATIN [Concomitant]
     Active Substance: ATORVASTATIN
     Indication: Hyperlipidaemia
     Dosage: 80 MILLIGRAM, HS
  15. ASPIRIN [Concomitant]
     Active Substance: ASPIRIN
     Indication: Cardiomyopathy
     Dosage: 81 MILLIGRAM, QD
  16. FUROSEMIDE [Concomitant]
     Active Substance: FUROSEMIDE
     Indication: Cardiomyopathy
     Dosage: 40 MILLIGRAM, QD
  17. LOSARTAN [Concomitant]
     Active Substance: LOSARTAN
     Indication: Cardiomyopathy
     Dosage: 25 MILLIGRAM, QD
  18. METFORMIN [Concomitant]
     Active Substance: METFORMIN HYDROCHLORIDE
     Indication: Diabetes mellitus
     Dosage: 1000 MILLIGRAM, BID
  19. SITAGLIPTIN [Concomitant]
     Active Substance: SITAGLIPTIN
     Indication: Diabetes mellitus
     Dosage: 100 MILLIGRAM, QD
  20. LEVOTHYROXINE [Concomitant]
     Active Substance: LEVOTHYROXINE
     Indication: Hypothyroidism
     Dosage: 50 MILLIGRAM, QD
  21. PRAMIPEXOLE [Concomitant]
     Active Substance: PRAMIPEXOLE
     Indication: Restless legs syndrome
     Dosage: 1 MILLIGRAM, TID
  22. CALCIUM CARBONATE [Concomitant]
     Active Substance: CALCIUM CARBONATE
     Indication: Hypovitaminosis
     Dosage: 1250 MILLIGRAM, QD
  23. FERROUS SULFATE [Concomitant]
     Active Substance: FERROUS SULFATE
     Indication: Hypovitaminosis
     Dosage: 325 MILLIGRAM, QD

REACTIONS (5)
  - Joint injury [Recovered/Resolved]
  - Fall [Recovered/Resolved]
  - Sedation [Recovered/Resolved]
  - Somnolence [Recovered/Resolved]
  - Drug interaction [Recovered/Resolved]
